FAERS Safety Report 5779924-9 (Version None)
Quarter: 2008Q2

REPORT INFORMATION
  Report Type: 
  Country: None (occurrence: None)
  Receive Date: 20080618
  Receipt Date: 20071228
  Transmission Date: 20081010
  Serious: Yes (Other)
  Sender: FDA-Public Use
  Company Number: APP200800007

PATIENT
  Age: 63 Year
  Sex: Male
  Weight: 69.8539 kg

DRUGS (2)
  1. PAMIDRONATE DISODIUM [Suspect]
     Indication: HYPERGAMMAGLOBULINAEMIA BENIGN MONOCLONAL
     Dosage: 90 MG, 1 IN 1 M
     Dates: end: 20070716
  2. AREDIA [Suspect]
     Indication: HYPERGAMMAGLOBULINAEMIA BENIGN MONOCLONAL
     Dosage: 90 MG, 1 IN 1 M
     Dates: start: 20020101

REACTIONS (1)
  - OSTEONECROSIS [None]
